FAERS Safety Report 13738494 (Version 1)
Quarter: 2017Q3

REPORT INFORMATION
  Report Type: Report from Study
  Country: US (occurrence: US)
  Receive Date: 20170710
  Receipt Date: 20170710
  Transmission Date: 20171127
  Serious: No
  Sender: FDA-Public Use
  Company Number: US-SAOL THERAPEUTICS-2017SAO00094

PATIENT

DRUGS (20)
  1. BACLOFEN. [Suspect]
     Active Substance: BACLOFEN
     Dosage: 270.99 ?G, \DAY
     Route: 037
     Dates: start: 20140402
  2. DILAUDID [Suspect]
     Active Substance: HYDROMORPHONE HYDROCHLORIDE
     Dosage: 3.749 MG, \DAY
     Route: 037
     Dates: start: 20140305, end: 20140311
  3. KETAMINE [Suspect]
     Active Substance: KETAMINE
     Dosage: 187.76 ?G, \DAY
     Route: 037
     Dates: start: 2014
  4. BACLOFEN. [Suspect]
     Active Substance: BACLOFEN
     Dosage: 109.49 ?G, \DAY
     Route: 037
     Dates: start: 20140311, end: 2014
  5. BACLOFEN. [Suspect]
     Active Substance: BACLOFEN
     Dosage: 195.78 ?G, \DAY
     Route: 037
     Dates: start: 20140311, end: 2014
  6. BUPIVACAINE. [Suspect]
     Active Substance: BUPIVACAINE
     Dosage: 13.139 MG, \DAY
     Route: 037
     Dates: start: 20140311, end: 2014
  7. BUPIVACAINE. [Suspect]
     Active Substance: BUPIVACAINE
     Dosage: 23.494 MG, \DAY
     Route: 037
     Dates: start: 20140311, end: 2014
  8. DILAUDID [Suspect]
     Active Substance: HYDROMORPHONE HYDROCHLORIDE
     Dosage: 6.265 MG, \DAY
     Route: 037
     Dates: start: 20140311, end: 2014
  9. BUPIVACAINE. [Suspect]
     Active Substance: BUPIVACAINE
     Dosage: 19.537 MG, \DAY
     Route: 037
     Dates: start: 20140305, end: 20140311
  10. BUPIVACAINE. [Suspect]
     Active Substance: BUPIVACAINE
     Dosage: 25.035 MG, \DAY
     Route: 037
     Dates: start: 2014
  11. BACLOFEN. [Suspect]
     Active Substance: BACLOFEN
     Dosage: 117.16 ?G, \DAY
     Route: 037
     Dates: start: 20140305, end: 20140311
  12. BACLOFEN. [Suspect]
     Active Substance: BACLOFEN
     Dosage: 156.47 ?G, \DAY
     Route: 037
     Dates: start: 20140402
  13. DILAUDID [Suspect]
     Active Substance: HYDROMORPHONE HYDROCHLORIDE
     Dosage: 5.007 MG, \DAY
     Route: 037
     Dates: start: 2014
  14. DILAUDID [Suspect]
     Active Substance: HYDROMORPHONE HYDROCHLORIDE
     Dosage: 8.671 MG, \DAY
     Route: 037
     Dates: start: 2014
  15. KETAMINE [Suspect]
     Active Substance: KETAMINE
     Dosage: 325.19 ?G, \DAY
     Route: 037
     Dates: start: 2014
  16. BUPIVACAINE. [Suspect]
     Active Substance: BUPIVACAINE
     Dosage: 43.359 MG, \DAY
     Route: 037
     Dates: start: 2014
  17. BACLOFEN. [Suspect]
     Active Substance: BACLOFEN
     Dosage: 162.81 ?G, \DAY
     Route: 037
     Dates: start: 20140305, end: 20140311
  18. DILAUDID [Suspect]
     Active Substance: HYDROMORPHONE HYDROCHLORIDE
     Dosage: 5.209 MG, \DAY
     Route: 037
     Dates: start: 20140305, end: 20140311
  19. DILAUDID [Suspect]
     Active Substance: HYDROMORPHONE HYDROCHLORIDE
     Dosage: 3.503 MG, \DAY
     Route: 037
     Dates: start: 20140311, end: 2014
  20. BUPIVACAINE. [Suspect]
     Active Substance: BUPIVACAINE
     Dosage: 14.059 MG, \DAY
     Route: 037
     Dates: start: 20140305, end: 20140311

REACTIONS (3)
  - Diplopia [Not Recovered/Not Resolved]
  - Feeling abnormal [Recovered/Resolved]
  - Overdose [Recovered/Resolved]

NARRATIVE: CASE EVENT DATE: 20140311
